FAERS Safety Report 11730885 (Version 1)
Quarter: 2015Q4

REPORT INFORMATION
  Report Type: Spontaneous
  Country: US (occurrence: US)
  Receive Date: 20151110
  Receipt Date: 20151110
  Transmission Date: 20160304
  Serious: No
  Sender: FDA-Public Use
  Company Number: US-ELI_LILLY_AND_COMPANY-US201202002588

PATIENT
  Age: 86 Year
  Sex: Female

DRUGS (2)
  1. FORTEO [Suspect]
     Active Substance: TERIPARATIDE
     Dosage: 20 UG, QD
     Route: 065
     Dates: start: 20120216, end: 20120218
  2. FORTEO [Suspect]
     Active Substance: TERIPARATIDE
     Indication: OSTEOPOROSIS
     Dosage: 20 UG, QD
     Route: 065
     Dates: start: 20120206, end: 20120213

REACTIONS (42)
  - Gastritis [Unknown]
  - Sleep disorder due to a general medical condition [Recovered/Resolved]
  - Anxiety [Unknown]
  - Insomnia [Recovered/Resolved]
  - General physical health deterioration [Unknown]
  - Visual impairment [Unknown]
  - Pain [Unknown]
  - Hyperhidrosis [Unknown]
  - Vision blurred [Unknown]
  - Bone pain [Unknown]
  - Toothache [Unknown]
  - Restlessness [Unknown]
  - Viral infection [Unknown]
  - Dysuria [Recovered/Resolved]
  - Dysphonia [Unknown]
  - Feeling abnormal [Not Recovered/Not Resolved]
  - Cough [Unknown]
  - Asthenia [Recovering/Resolving]
  - Urinary retention [Recovered/Resolved]
  - Decreased activity [Not Recovered/Not Resolved]
  - Rhinorrhoea [Unknown]
  - Nausea [Not Recovered/Not Resolved]
  - Fatigue [Not Recovered/Not Resolved]
  - Abdominal rigidity [Unknown]
  - Lacrimation increased [Unknown]
  - Sneezing [Unknown]
  - Nasopharyngitis [Recovered/Resolved]
  - Arthralgia [Unknown]
  - Injection site bruising [Unknown]
  - Drug dose omission [Recovered/Resolved]
  - Renal impairment [Unknown]
  - Fluid retention [Recovering/Resolving]
  - Pain in jaw [Unknown]
  - Swelling face [Recovering/Resolving]
  - Malaise [Not Recovered/Not Resolved]
  - Pyrexia [Unknown]
  - Weight increased [Unknown]
  - Headache [Not Recovered/Not Resolved]
  - Dizziness [Unknown]
  - Fluid retention [Not Recovered/Not Resolved]
  - Heart rate increased [Recovered/Resolved]
  - Palpitations [Unknown]

NARRATIVE: CASE EVENT DATE: 201202
